FAERS Safety Report 7489983 (Version 2)
Quarter: 2016Q1

REPORT INFORMATION
  Report Type: Spontaneous
  Country: DE (occurrence: DE)
  Receive Date: 20100719
  Receipt Date: 20160114
  Transmission Date: 20160526
  Serious: Yes (Other)
  Sender: FDA-Public Use
  Company Number: DE-BRISTOL-MYERS SQUIBB COMPANY-14136378

PATIENT
  Age: 35 Year
  Sex: Female
  Weight: 65 kg

DRUGS (1)
  1. ABILIFY [Suspect]
     Active Substance: ARIPIPRAZOLE
     Indication: SCHIZOPHRENIA
     Dosage: 30 MG, UNK
     Route: 048
     Dates: start: 200709

REACTIONS (5)
  - Drug abuse [Unknown]
  - Urinary tract infection [Unknown]
  - Maternal exposure during pregnancy [Recovered/Resolved]
  - Stress [Unknown]
  - Live birth [Unknown]

NARRATIVE: CASE EVENT DATE: 20080829
